FAERS Safety Report 5038296-8 (Version None)
Quarter: 2006Q2

REPORT INFORMATION
  Report Type: 
  Country: None (occurrence: None)
  Receive Date: 20060629
  Receipt Date: 20060621
  Transmission Date: 20061013
  Serious: Yes (Hospitalization)
  Sender: FDA-Public Use
  Company Number: PHBS2006TW09470

PATIENT
  Sex: Female

DRUGS (2)
  1. MIACALCIN [Suspect]
     Dosage: 50 IU/DAY
     Dates: start: 20060410
  2. STIN [Concomitant]

REACTIONS (2)
  - BRONCHOSPASM [None]
  - LOSS OF CONSCIOUSNESS [None]
